FAERS Safety Report 18519855 (Version 1)
Quarter: 2020Q4

REPORT INFORMATION
  Report Type: Spontaneous
  Country: SI (occurrence: SI)
  Receive Date: 20201118
  Receipt Date: 20201118
  Transmission Date: 20210114
  Serious: Yes (Hospitalization)
  Sender: FDA-Public Use
  Company Number: SI-ANIPHARMA-2020-SI-000006

PATIENT
  Age: 70 Year
  Sex: Male

DRUGS (4)
  1. CANDESARTAN CILEXETIL. [Suspect]
     Active Substance: CANDESARTAN CILEXETIL
     Indication: PRODUCT USED FOR UNKNOWN INDICATION
     Dosage: 16 MG UNK
     Route: 048
  2. ENTRESTO [Suspect]
     Active Substance: SACUBITRIL\VALSARTAN
     Dosage: 100 MG QD / 200 MG QD / 400 MG QD
     Route: 065
  3. EPLERENONE. [Suspect]
     Active Substance: EPLERENONE
     Dosage: 25 MG UNK
     Route: 065
  4. BISOPROLOL [Suspect]
     Active Substance: BISOPROLOL
     Dosage: 10 MG UNK
     Route: 065

REACTIONS (6)
  - Arrhythmia [Unknown]
  - Supraventricular tachyarrhythmia [Unknown]
  - Ventricular tachycardia [Recovered/Resolved]
  - Respiratory tract infection [Unknown]
  - Cough [Unknown]
  - Cardiac failure [Unknown]
